APPROVED DRUG PRODUCT: MESNEX
Active Ingredient: MESNA
Strength: 400MG
Dosage Form/Route: TABLET;ORAL
Application: N020855 | Product #001 | TE Code: AB
Applicant: BAXTER HEALTHCARE CORP
Approved: Mar 21, 2002 | RLD: Yes | RS: Yes | Type: RX